FAERS Safety Report 24714516 (Version 1)
Quarter: 2024Q4

REPORT INFORMATION
  Report Type: Spontaneous
  Country: JP (occurrence: JP)
  Receive Date: 20241209
  Receipt Date: 20241209
  Transmission Date: 20250115
  Serious: Yes (Hospitalization)
  Sender: BRISTOL-MYERS SQUIBB COMPANY
  Company Number: JP-BRISTOL-MYERS SQUIBB COMPANY-2024-189059

PATIENT
  Age: 34 Year
  Sex: Female

DRUGS (2)
  1. POMALYST [Suspect]
     Active Substance: POMALIDOMIDE
     Indication: Product used for unknown indication
     Route: 048
     Dates: start: 20241001, end: 20241006
  2. POMALYST [Suspect]
     Active Substance: POMALIDOMIDE
     Dosage: POMALYST 2MG RESUME
     Route: 048
     Dates: start: 20241120, end: 20241120

REACTIONS (3)
  - Oropharyngeal pain [Recovering/Resolving]
  - Pyrexia [Recovering/Resolving]
  - Cheilitis [Recovering/Resolving]

NARRATIVE: CASE EVENT DATE: 20241005
